FAERS Safety Report 7281000-3 (Version None)
Quarter: 2011Q1

REPORT INFORMATION
  Report Type: 
  Country: None (occurrence: None)
  Receive Date: 20110208
  Receipt Date: 20110131
  Transmission Date: 20110831
  Serious: Yes (Death, Other)
  Sender: FDA-Public Use
  Company Number: CHPA2011US01850

PATIENT
  Age: 49 Year
  Sex: Female

DRUGS (5)
  1. QUETIAPINE [Suspect]
     Route: 048
  2. BENZODIAZEPINES [Suspect]
     Route: 048
  3. ETHANOL [Suspect]
     Route: 048
  4. CAFFEINE [Suspect]
     Route: 048
  5. PROPOXYPHENE HYDROCHLORIDE [Suspect]
     Route: 048

REACTIONS (2)
  - CARDIO-RESPIRATORY ARREST [None]
  - DEATH [None]
